FAERS Safety Report 10308379 (Version 2)
Quarter: 2014Q3

REPORT INFORMATION
  Report Type: Spontaneous
  Country: JP (occurrence: JP)
  Receive Date: 20140716
  Receipt Date: 20140716
  Transmission Date: 20150326
  Serious: Yes (Death, Life-Threatening, Other)
  Sender: FDA-Public Use
  Company Number: JP-PFIZER INC-2014161911

PATIENT
  Age: 54 Year
  Sex: Male

DRUGS (4)
  1. VFEND [Suspect]
     Active Substance: VORICONAZOLE
     Indication: BRONCHOPULMONARY ASPERGILLOSIS
     Dosage: 600 MG, DAILY
     Route: 042
     Dates: start: 20140601, end: 20140609
  2. FINIBAX [Concomitant]
     Active Substance: DORIPENEM MONOHYDRATE
     Indication: PNEUMONIA ASPIRATION
     Dosage: 1.5 G, 1X/DAY
     Route: 042
     Dates: start: 20140608, end: 20140616
  3. OMEPRAL [Concomitant]
     Active Substance: OMEPRAZOLE
     Indication: GASTROINTESTINAL PERFORATION
     Dosage: 40 MG, 1X/DAY
     Route: 042
     Dates: start: 20140608, end: 20140611
  4. ZYVOX [Concomitant]
     Active Substance: LINEZOLID
     Indication: STAPHYLOCOCCAL SEPSIS
     Dosage: 1200 MG, 1X/DAY
     Route: 042
     Dates: start: 20140604, end: 20140616

REACTIONS (3)
  - Diffuse large B-cell lymphoma [Fatal]
  - Ventricular tachycardia [Recovering/Resolving]
  - Liver function test abnormal [Not Recovered/Not Resolved]

NARRATIVE: CASE EVENT DATE: 20140601
